FAERS Safety Report 9886082 (Version 1)
Quarter: 2014Q1

REPORT INFORMATION
  Report Type: Spontaneous
  Country: CA (occurrence: CA)
  Receive Date: 20140210
  Receipt Date: 20140210
  Transmission Date: 20141002
  Serious: Yes (Hospitalization)
  Sender: FDA-Public Use
  Company Number: CA-009507513-1402CAN002578

PATIENT
  Age: 68 Year
  Sex: Male

DRUGS (3)
  1. VICTRELIS TRIPLE [Suspect]
     Indication: HEPATITIS C
     Dosage: 150 MICROGRAM, UNK
     Route: 065
     Dates: start: 201307, end: 201401
  2. ISENTRESS [Concomitant]
     Route: 065
  3. TRUVADA [Concomitant]
     Route: 065

REACTIONS (15)
  - Syncope [Recovering/Resolving]
  - Diarrhoea [Recovering/Resolving]
  - Dizziness [Recovering/Resolving]
  - Decreased appetite [Recovering/Resolving]
  - Vomiting [Recovering/Resolving]
  - Insomnia [Recovering/Resolving]
  - Muscle atrophy [Recovering/Resolving]
  - Weight decreased [Recovering/Resolving]
  - Generalised erythema [Recovering/Resolving]
  - Pruritus generalised [Recovering/Resolving]
  - Muscle spasms [Recovering/Resolving]
  - Skin wrinkling [Recovering/Resolving]
  - Pyrexia [Recovering/Resolving]
  - Insomnia [Recovering/Resolving]
  - Weight decreased [Recovering/Resolving]
